FAERS Safety Report 6619326-6 (Version None)
Quarter: 2010Q1

REPORT INFORMATION
  Report Type: 
  Country: None (occurrence: None)
  Receive Date: 20100308
  Receipt Date: 20100304
  Transmission Date: 20100710
  Serious: Yes (Hospitalization, Other)
  Sender: FDA-Public Use
  Company Number: US-BRISTOL-MYERS SQUIBB COMPANY-13931787

PATIENT
  Age: 59 Year
  Sex: Female

DRUGS (4)
  1. IXABEPILONE [Suspect]
     Indication: NEOPLASM MALIGNANT
     Dosage: DRUG INTERRUPTED ON 24SEP07.
     Route: 048
     Dates: start: 20070820
  2. LOPRESSOR [Concomitant]
     Dates: start: 20060601
  3. FENTANYL [Concomitant]
     Dates: start: 20070927
  4. OXYCODONE HCL [Concomitant]
     Dates: start: 20070927

REACTIONS (3)
  - DEHYDRATION [None]
  - MUSCULOSKELETAL CHEST PAIN [None]
  - VOMITING [None]
